FAERS Safety Report 9590605 (Version 1)
Quarter: 2013Q4

REPORT INFORMATION
  Report Type: Spontaneous
  Country: US (occurrence: US)
  Receive Date: 20131003
  Receipt Date: 20131003
  Transmission Date: 20140711
  Serious: No
  Sender: FDA-Public Use
  Company Number: US-AMGEN-USASP2012078366

PATIENT
  Age: 64 Year
  Sex: Female
  Weight: 73.47 kg

DRUGS (15)
  1. ENBREL [Suspect]
     Indication: RHEUMATOID ARTHRITIS
     Dosage: 50 MG, WEEKLY
     Route: 058
     Dates: end: 20121105
  2. CYMBALTA [Concomitant]
     Dosage: 20 MG, UNK
  3. PROVENTIL                          /00139501/ [Concomitant]
     Dosage: 90 MUG, UNK
  4. PLAQUENIL                          /00072602/ [Concomitant]
     Dosage: 200 MG, UNK
  5. DICLOFENAC [Concomitant]
     Dosage: 25 MG, UNK
  6. HYDROCHLOROTH [Concomitant]
     Dosage: 25 MG, UNK
  7. PREDNISONE [Concomitant]
     Dosage: 1 MG, UNK
  8. CARDIZEM CD [Concomitant]
     Dosage: 120 MG, UNK
  9. CO Q-10 [Concomitant]
     Dosage: 100 MG, UNK
  10. VITAMIN D                          /00107901/ [Concomitant]
     Dosage: 1000 UNIT, UNK
  11. FISH OIL [Concomitant]
     Dosage: UNK
  12. FLOVENT [Concomitant]
     Dosage: 220 MUG, UNK
  13. RHINOCORT AQUA [Concomitant]
     Dosage: UNK
  14. ALLEGRA [Concomitant]
     Dosage: 60 MG, UNK
  15. SINGULAIR [Concomitant]
     Dosage: 10 MG, UNK

REACTIONS (4)
  - Influenza like illness [Unknown]
  - Pain [Unknown]
  - Mood swings [Unknown]
  - Irritability [Unknown]
